FAERS Safety Report 16938067 (Version 1)
Quarter: 2019Q4

REPORT INFORMATION
  Report Type: Spontaneous
  Country: GB (occurrence: GB)
  Receive Date: 20191018
  Receipt Date: 20191018
  Transmission Date: 20200122
  Serious: Yes (Disabling)
  Sender: FDA-Public Use
  Company Number: GB-MYLANLABS-2019M1097882

PATIENT
  Age: 84 Year
  Sex: Male
  Weight: 71 kg

DRUGS (17)
  1. INDAPAMIDE. [Concomitant]
     Active Substance: INDAPAMIDE
     Dosage: MORNING
     Dates: start: 20190327
  2. PREDNISOLONE. [Concomitant]
     Active Substance: PREDNISOLONE
     Dosage: 1 DOSAGE FORM, QD
     Dates: start: 20190114
  3. ACETYLSALICYLIC ACID [Concomitant]
     Active Substance: ASPIRIN
     Dosage: 1 EVERY DAY
     Dates: start: 20190114
  4. OLMESARTAN MEDOXOMIL. [Concomitant]
     Active Substance: OLMESARTAN MEDOXOMIL
     Dosage: 1 DOSAGE FORM, QD
     Dates: start: 20190114
  5. TAMSULOSIN HYDROCHLORIDE. [Concomitant]
     Active Substance: TAMSULOSIN HYDROCHLORIDE
     Dosage: MORNING
     Dates: start: 20190114
  6. DOXYCYCLINE. [Suspect]
     Active Substance: DOXYCYCLINE
     Indication: PRODUCT USED FOR UNKNOWN INDICATION
     Dosage: TWO NOW THEN ONE DAILY
     Dates: start: 20190820, end: 20190827
  7. APIXABAN [Concomitant]
     Active Substance: APIXABAN
     Dosage: TAKE ONE TWICE DAILY
     Dates: start: 20190114
  8. GLYCERYL TRINITRATE [Concomitant]
     Active Substance: NITROGLYCERIN
     Dosage: 1 DOSAGE FORM, PRN
     Route: 060
     Dates: start: 20190114
  9. OMEPRAZOLE. [Concomitant]
     Active Substance: OMEPRAZOLE
     Dosage: NIGHT
     Dates: start: 20190114
  10. ATENOLOL. [Concomitant]
     Active Substance: ATENOLOL
     Dosage: 1 TO BE TAKEN EACH MORNING
     Dates: start: 20190114
  11. AMITRIPTYLINE HYDROCHLORIDE. [Concomitant]
     Active Substance: AMITRIPTYLINE HYDROCHLORIDE
     Dosage: 1-2 TO BE TAKEN EACH NIGHT
     Dates: start: 20190114
  12. ALENDRONIC ACID [Concomitant]
     Active Substance: ALENDRONIC ACID
     Dosage: TAKE ONE WITH PLENTY OF WATER ONCE WEEKLY
     Dates: start: 20190114
  13. TEMAZEPAM. [Concomitant]
     Active Substance: TEMAZEPAM
     Dosage: 1 TO BE TAKEN EACH NIGHT
     Dates: start: 20190114
  14. FINASTERIDE. [Concomitant]
     Active Substance: FINASTERIDE
     Dosage: 1 DOSAGE FORM, QD
     Dates: start: 20190114
  15. ATORVASTATIN [Concomitant]
     Active Substance: ATORVASTATIN
     Dosage: NIGHT
     Dates: start: 20190114
  16. TRAMADOL. [Concomitant]
     Active Substance: TRAMADOL
     Dosage: TAKE 1 OR 2 UP TO 4 TIMES A DAY
     Dates: start: 20190114
  17. BECLOMETASONE [Concomitant]
     Active Substance: BECLOMETHASONE DIPROPIONATE
     Dosage: TWO SPRAYS IN EACH NOSTRIL TWICE A DAY
     Route: 045
     Dates: start: 20190114

REACTIONS (3)
  - Abdominal pain upper [Unknown]
  - Headache [Recovered/Resolved]
  - Mental disorder [Unknown]

NARRATIVE: CASE EVENT DATE: 20190827
